FAERS Safety Report 19714440 (Version 1)
Quarter: 2021Q3

REPORT INFORMATION
  Report Type: Spontaneous
  Country: AR (occurrence: AR)
  Receive Date: 20210818
  Receipt Date: 20210818
  Transmission Date: 20211014
  Serious: Yes (Death, Other)
  Sender: FDA-Public Use
  Company Number: AR-AUROBINDO-AUR-APL-2021-035317

PATIENT
  Age: 57 Year
  Sex: Male

DRUGS (1)
  1. BELINOSTAT [Suspect]
     Active Substance: BELINOSTAT
     Indication: NON-HODGKIN^S LYMPHOMA
     Dosage: 1000 MILLIGRAM/SQ. METER
     Route: 065

REACTIONS (8)
  - Disease progression [Fatal]
  - Cardiac failure [Fatal]
  - Pulmonary embolism [Fatal]
  - Cyanosis [Fatal]
  - Thrombotic microangiopathy [Fatal]
  - Thrombocytopenia [Fatal]
  - Deep vein thrombosis [Fatal]
  - Shock [Fatal]
